FAERS Safety Report 8044657-5 (Version None)
Quarter: 2011Q4

REPORT INFORMATION
  Report Type: 
  Country: None (occurrence: None)
  Receive Date: 20111202
  Receipt Date: 20110412
  Transmission Date: 20120403
  Serious: Yes (Hospitalization)
  Sender: FDA-Public Use
  Company Number: 2011SP016571

PATIENT
  Age: 45 Year
  Sex: Female
  Weight: 56.246 kg

DRUGS (1)
  1. NUVARING [Suspect]
     Indication: PREMENSTRUAL SYNDROME
     Dates: start: 20040421, end: 20061210

REACTIONS (8)
  - BREAST TENDERNESS [None]
  - DEEP VEIN THROMBOSIS [None]
  - PULMONARY INFARCTION [None]
  - ANTIPHOSPHOLIPID ANTIBODIES POSITIVE [None]
  - BREAST MASS [None]
  - ANXIETY [None]
  - INAPPROPRIATE SCHEDULE OF DRUG ADMINISTRATION [None]
  - MENISCUS LESION [None]
